FAERS Safety Report 4788706-6 (Version None)
Quarter: 2005Q4

REPORT INFORMATION
  Report Type: 
  Country: None (occurrence: None)
  Receive Date: 20051003
  Receipt Date: 20041221
  Transmission Date: 20060501
  Serious: Yes (Hospitalization)
  Sender: FDA-Public Use
  Company Number: 2005VX000017

PATIENT

DRUGS (1)
  1. EFUDEX [Suspect]
     Dosage: TOPICAL
     Route: 061

REACTIONS (1)
  - DIARRHOEA [None]
